FAERS Safety Report 10004505 (Version 1)
Quarter: 2014Q1

REPORT INFORMATION
  Report Type: Spontaneous
  Country: CL (occurrence: CL)
  Receive Date: 20140312
  Receipt Date: 20140312
  Transmission Date: 20141002
  Serious: Yes (Other)
  Sender: FDA-Public Use
  Company Number: CL-PFIZER INC-2014067796

PATIENT
  Age: 78 Year
  Sex: Female

DRUGS (6)
  1. XALATAN [Suspect]
     Indication: GLAUCOMA
     Dosage: UNK
  2. INSULIN [Concomitant]
     Dosage: UNK
  3. ATORVASTATIN [Concomitant]
     Dosage: UNK
  4. AMLODIPINE [Concomitant]
     Dosage: UNK
  5. HYDROCHLOROTHIAZIDE [Concomitant]
     Dosage: UNK
  6. KOPODEX [Concomitant]
     Dosage: UNK

REACTIONS (2)
  - Angiopathy [Unknown]
  - Hearing impaired [Unknown]
